FAERS Safety Report 7121423-6 (Version None)
Quarter: 2010Q4

REPORT INFORMATION
  Report Type: 
  Country: None (occurrence: None)
  Receive Date: 20101124
  Receipt Date: 20101112
  Transmission Date: 20110411
  Serious: Yes (Hospitalization, Other)
  Sender: FDA-Public Use
  Company Number: PHHY2009CA17403

PATIENT
  Sex: Female

DRUGS (2)
  1. SANDOSTATIN LAR [Suspect]
     Indication: SHORT-BOWEL SYNDROME
     Dosage: 20 MG, QMO
     Route: 030
     Dates: start: 20081215
  2. SANDOSTATIN LAR [Suspect]
     Dosage: 20 MG, EVERY 4 WEEKS
     Route: 030

REACTIONS (9)
  - BLOOD PRESSURE INCREASED [None]
  - CELLULITIS [None]
  - DIARRHOEA [None]
  - GASTROINTESTINAL HAEMORRHAGE [None]
  - GASTROSTOMY [None]
  - HEART RATE INCREASED [None]
  - POSTOPERATIVE WOUND INFECTION [None]
  - PULMONARY OEDEMA [None]
  - SPINAL FRACTURE [None]
